FAERS Safety Report 11613951 (Version 1)
Quarter: 2015Q4

REPORT INFORMATION
  Report Type: Spontaneous
  Country: US (occurrence: US)
  Receive Date: 20151008
  Receipt Date: 20151008
  Transmission Date: 20160304
  Serious: No
  Sender: FDA-Public Use
  Company Number: US-GLAXOSMITHKLINE-US2015GSK131520

PATIENT
  Sex: Male

DRUGS (1)
  1. PROPAFENONE HYDROCHLORIDE MODIFIED-RELEASE CAPSULE, HARD [Suspect]
     Active Substance: PROPAFENONE HYDROCHLORIDE
     Indication: PRODUCT USED FOR UNKNOWN INDICATION

REACTIONS (2)
  - Drug administration error [Unknown]
  - Off label use [Unknown]
